FAERS Safety Report 18013903 (Version 1)
Quarter: 2020Q3

REPORT INFORMATION
  Report Type: Spontaneous
  Country: US (occurrence: US)
  Receive Date: 20200712
  Receipt Date: 20200712
  Transmission Date: 20201103
  Serious: Yes (Hospitalization)
  Sender: FDA-Public Use
  Company Number: None

PATIENT
  Age: 59 Year
  Sex: Female
  Weight: 61.65 kg

DRUGS (8)
  1. RISEDRONATE SODIUM TABLET, USP 150MG [Suspect]
     Active Substance: RISEDRONATE SODIUM
     Indication: OSTEOPOROSIS
     Dosage: ?          QUANTITY:1 TABLET(S);?
     Route: 048
     Dates: start: 20200705, end: 20200705
  2. LOSARTAN. [Concomitant]
     Active Substance: LOSARTAN
  3. LEVOTHYROXINE. [Concomitant]
     Active Substance: LEVOTHYROXINE
  4. VITAMIN D [Concomitant]
     Active Substance: VITAMIN D NOS
  5. ALBUTEROL. [Concomitant]
     Active Substance: ALBUTEROL
  6. FOSAMAX [Suspect]
     Active Substance: ALENDRONATE SODIUM
  7. CALCIUM [Concomitant]
     Active Substance: CALCIUM
  8. TYLENOL [Concomitant]
     Active Substance: ACETAMINOPHEN

REACTIONS (14)
  - Palpitations [None]
  - Pyrexia [None]
  - Muscular weakness [None]
  - Gastrooesophageal reflux disease [None]
  - Dehydration [None]
  - Dyspepsia [None]
  - Pain [None]
  - Decreased appetite [None]
  - Vomiting [None]
  - Bone pain [None]
  - Influenza like illness [None]
  - Blood calcium decreased [None]
  - Fatigue [None]
  - Paraesthesia oral [None]

NARRATIVE: CASE EVENT DATE: 20200708
